FAERS Safety Report 15089737 (Version 1)
Quarter: 2018Q2

REPORT INFORMATION
  Report Type: Spontaneous
  Country: US (occurrence: US)
  Receive Date: 20180629
  Receipt Date: 20180629
  Transmission Date: 20180711
  Serious: No
  Sender: FDA-Public Use
  Company Number: US-ASTRAZENECA-2018SE73676

PATIENT
  Sex: Male
  Weight: 195 kg

DRUGS (5)
  1. GABAPENTIN. [Concomitant]
     Active Substance: GABAPENTIN
     Indication: NEUROPATHY PERIPHERAL
  2. CYMBALTA [Concomitant]
     Active Substance: DULOXETINE HYDROCHLORIDE
     Indication: NEUROPATHY PERIPHERAL
  3. BYDUREON [Suspect]
     Active Substance: EXENATIDE
     Indication: GLYCOSYLATED HAEMOGLOBIN
     Dosage: ONCE A WEEK
     Route: 065
  4. XARELTO [Concomitant]
     Active Substance: RIVAROXABAN
  5. BYETTA [Suspect]
     Active Substance: EXENATIDE
     Indication: GLYCOSYLATED HAEMOGLOBIN
     Dosage: EVERY DAY
     Route: 065

REACTIONS (4)
  - Therapy cessation [Unknown]
  - Weight decreased [Unknown]
  - Joint injury [Unknown]
  - Off label use [Unknown]
